FAERS Safety Report 15547140 (Version 1)
Quarter: 2018Q4

REPORT INFORMATION
  Report Type: Spontaneous
  Country: GB (occurrence: GB)
  Receive Date: 20181024
  Receipt Date: 20181024
  Transmission Date: 20190205
  Serious: Yes (Other)
  Sender: FDA-Public Use
  Company Number: GB-TEVA-2018-GB-967937

PATIENT
  Age: 63 Year
  Sex: Male

DRUGS (4)
  1. MINIMS CHLORAMPHENICOL [Concomitant]
     Route: 065
  2. ACETAZOLAMIDE. [Suspect]
     Active Substance: ACETAZOLAMIDE
     Indication: PROCEDURAL VOMITING
     Route: 048
     Dates: start: 20180828, end: 20180828
  3. MAXIDEX [Concomitant]
     Active Substance: DEXAMETHASONE
     Route: 065
  4. ZOTON [Concomitant]
     Active Substance: LANSOPRAZOLE
     Route: 065

REACTIONS (6)
  - Asthenia [Unknown]
  - Diarrhoea [Recovered/Resolved]
  - Malaise [Unknown]
  - Vomiting [Recovered/Resolved]
  - Lethargy [Unknown]
  - Feeling cold [Unknown]

NARRATIVE: CASE EVENT DATE: 20180828
